FAERS Safety Report 4970078-5 (Version None)
Quarter: 2006Q2

REPORT INFORMATION
  Report Type: 
  Country: None (occurrence: None)
  Receive Date: 20060406
  Receipt Date: 20060315
  Transmission Date: 20061013
  Serious: Yes (Hospitalization)
  Sender: FDA-Public Use
  Company Number: USA0511112802

PATIENT
  Age: 45 Year
  Sex: Male

DRUGS (2)
  1. CYMBALTA [Suspect]
     Indication: PAIN
     Dosage: 60 MG
  2. AVINZA [Concomitant]

REACTIONS (1)
  - HEPATOTOXICITY [None]
